FAERS Safety Report 9879466 (Version 1)
Quarter: 2014Q1

REPORT INFORMATION
  Report Type: Spontaneous
  Country: US (occurrence: US)
  Receive Date: 20140206
  Receipt Date: 20140206
  Transmission Date: 20141002
  Serious: Yes (Other)
  Sender: FDA-Public Use
  Company Number: CHPA2014US002043

PATIENT
  Age: 69 Year
  Sex: Female

DRUGS (2)
  1. MAALOX ANTACID/ANTIGAS MAX LIQ UNKNOWN [Suspect]
     Indication: OESOPHAGEAL SPASM
     Dosage: 6 TSP OR A LITTLE MORE, PRN
     Route: 048
  2. MAALOX ANTACID/ANTIGAS MAX LIQ UNKNOWN [Suspect]
     Indication: OFF LABEL USE

REACTIONS (4)
  - Oesophageal spasm [Not Recovered/Not Resolved]
  - Condition aggravated [Not Recovered/Not Resolved]
  - Therapeutic response unexpected [Unknown]
  - Incorrect dose administered [Unknown]
